FAERS Safety Report 7176559-0 (Version None)
Quarter: 2010Q4

REPORT INFORMATION
  Report Type: 
  Country: None (occurrence: None)
  Receive Date: 20101220
  Receipt Date: 20101207
  Transmission Date: 20110411
  Serious: Yes (Hospitalization)
  Sender: FDA-Public Use
  Company Number: PHFR2010GB05010

PATIENT
  Sex: Female

DRUGS (3)
  1. CLOZARIL [Suspect]
     Indication: SCHIZOPHRENIA
     Dosage: UNK
     Route: 048
     Dates: start: 20050412
  2. CLOZARIL [Suspect]
     Dosage: 525 MG, UNK
     Route: 048
  3. VALPROATE SODIUM [Concomitant]
     Dosage: UNK
     Route: 048

REACTIONS (1)
  - INFECTED CYST [None]
